FAERS Safety Report 13349896 (Version 2)
Quarter: 2017Q3

REPORT INFORMATION
  Report Type: Spontaneous
  Country: GB (occurrence: GB)
  Receive Date: 20170320
  Receipt Date: 20170801
  Transmission Date: 20171127
  Serious: Yes (Hospitalization)
  Sender: FDA-Public Use
  Company Number: GB-009507513-1703GBR007622

PATIENT
  Age: 71 Year
  Sex: Male

DRUGS (42)
  1. DEXAMETHASONE. [Suspect]
     Active Substance: DEXAMETHASONE
     Dosage: 40 MG, C1D15
     Route: 041
     Dates: start: 20151230, end: 20151230
  2. DARATUMUMAB [Suspect]
     Active Substance: DARATUMUMAB
     Dosage: 1440MG, 1 IN 1 WK
     Route: 041
     Dates: start: 20160119
  3. REVLIMID [Suspect]
     Active Substance: LENALIDOMIDE
     Dosage: AT CYCLE 2 PERIOD 1, 25 MG,21 IN 28 D
     Route: 048
     Dates: start: 20160119
  4. FLOXACILLIN [Concomitant]
     Active Substance: FLUCLOXACILLIN
     Indication: RASH
     Dosage: UNK
     Route: 065
     Dates: start: 20160824
  5. SODIUM PHOSPHATE, DIBASIC [Concomitant]
     Active Substance: SODIUM PHOSPHATE, DIBASIC
     Dosage: 2 DOSAGE FORMS,1 IN 1 D
     Route: 048
     Dates: start: 20160104, end: 20160106
  6. HYDROCORTISONE. [Concomitant]
     Active Substance: HYDROCORTISONE
     Indication: CHEST DISCOMFORT
     Dosage: UNKNOWN
     Route: 065
  7. DEXAMETHASONE. [Suspect]
     Active Substance: DEXAMETHASONE
     Dosage: 40 MG, C1D8
     Route: 041
     Dates: start: 20151222, end: 20151222
  8. DEXAMETHASONE. [Suspect]
     Active Substance: DEXAMETHASONE
     Dosage: 40 MG, C1D22
     Route: 041
     Dates: start: 20160107, end: 20160107
  9. ACYCLOVIR. [Concomitant]
     Active Substance: ACYCLOVIR
     Indication: INFECTION PROPHYLAXIS
     Dosage: 800 MG (400 MG, 2 IN 1D)
     Route: 048
     Dates: start: 20151215
  10. ALBUTEROL. [Concomitant]
     Active Substance: ALBUTEROL
     Indication: COUGH
     Dosage: UNK
     Route: 065
  11. HYDROCORTISONE. [Concomitant]
     Active Substance: HYDROCORTISONE
     Indication: COUGH
     Dosage: UNK
     Route: 065
  12. DEXAMETHASONE. [Suspect]
     Active Substance: DEXAMETHASONE
     Dosage: 40 MG, AT CYCLE 2 DAY 22
     Route: 041
     Dates: start: 20160209, end: 20160209
  13. DEXAMETHASONE. [Suspect]
     Active Substance: DEXAMETHASONE
     Dosage: 40 MG, C3D1
     Route: 041
     Dates: start: 20160216, end: 20160216
  14. DARATUMUMAB [Suspect]
     Active Substance: DARATUMUMAB
     Dosage: C1D15, 1440 MG,1 IN 1 WK
     Route: 041
     Dates: start: 20151230, end: 20151230
  15. PHOSPHATE POLYFUSOR [Concomitant]
     Indication: HYPOPHOSPHATAEMIA
     Dosage: UNK
     Route: 065
     Dates: start: 20161019
  16. AMOXICILLIN. [Concomitant]
     Active Substance: AMOXICILLIN
     Indication: COUGH
     Dosage: UNKNOWN
     Route: 065
     Dates: start: 20161129
  17. DARATUMUMAB [Suspect]
     Active Substance: DARATUMUMAB
     Dosage: C3D1, 1440MG, 1 IN 1 WEEK
     Route: 041
     Dates: start: 20160216, end: 20160216
  18. DARATUMUMAB [Suspect]
     Active Substance: DARATUMUMAB
     Dosage: C3D1, (1440 MG,1 IN 1 WK)
     Route: 041
     Dates: start: 20160303, end: 20160303
  19. ALBUTEROL. [Concomitant]
     Active Substance: ALBUTEROL
     Indication: CHEST DISCOMFORT
     Dosage: UNK
     Route: 065
     Dates: start: 20161129
  20. ZOLEDRONIC ACID [Concomitant]
     Active Substance: ZOLEDRONIC ACID
     Indication: PROPHYLAXIS
     Dosage: 4 MG,1 IN 1 M
     Route: 041
     Dates: start: 20161026
  21. DEXAMETHASONE. [Suspect]
     Active Substance: DEXAMETHASONE
     Dosage: 40 MG, C3D22
     Route: 041
     Dates: start: 20160308, end: 20160308
  22. DARATUMUMAB [Suspect]
     Active Substance: DARATUMUMAB
     Indication: PLASMA CELL MYELOMA
     Dosage: CYCLE 1 DAY 1, 1440 MG,1 IN 1 WK
     Route: 041
     Dates: start: 20151215, end: 20151215
  23. DARATUMUMAB [Suspect]
     Active Substance: DARATUMUMAB
     Dosage: C4D1, (1440 MG,1 IN 1 WK)
     Route: 041
     Dates: start: 20160315, end: 20160315
  24. DARATUMUMAB [Suspect]
     Active Substance: DARATUMUMAB
     Dosage: C1D8, 144MG, 1 IN 1 W
     Route: 041
     Dates: start: 20151222, end: 20151222
  25. CLARITHROMYCIN. [Concomitant]
     Active Substance: CLARITHROMYCIN
     Indication: LOWER RESPIRATORY TRACT INFECTION
     Dosage: 500 MG, UNK
     Route: 048
     Dates: start: 20160104
  26. CLARITHROMYCIN. [Concomitant]
     Active Substance: CLARITHROMYCIN
     Dosage: 500 MG, UNK
     Route: 048
     Dates: start: 20160101
  27. DOXYCYCLINE. [Concomitant]
     Active Substance: DOXYCYCLINE
     Dosage: UNKNOWN
     Route: 065
     Dates: start: 20161206
  28. DEXAMETHASONE. [Suspect]
     Active Substance: DEXAMETHASONE
     Dosage: 40 MG, C3D8
     Route: 041
     Dates: start: 20160223, end: 20160223
  29. DEXAMETHASONE. [Suspect]
     Active Substance: DEXAMETHASONE
     Dosage: 40 MG, C3D15
     Route: 041
     Dates: start: 20160303, end: 20160303
  30. DEXAMETHASONE. [Suspect]
     Active Substance: DEXAMETHASONE
     Dosage: 40 MG, C4D1
     Route: 041
     Dates: start: 20160315
  31. REVLIMID [Suspect]
     Active Substance: LENALIDOMIDE
     Dosage: 25 MG, UNK
     Route: 048
     Dates: start: 20160216
  32. CHLORPHENAMINE [Concomitant]
     Active Substance: CHLORPHENIRAMINE MALEATE
     Indication: COUGH
     Dosage: UNK
     Route: 065
  33. CHLORPHENAMINE [Concomitant]
     Active Substance: CHLORPHENIRAMINE MALEATE
     Indication: CHEST DISCOMFORT
     Dosage: UNK
     Route: 065
  34. CHOLESTYRAMINE RESIN [Concomitant]
     Active Substance: CHOLESTYRAMINE
     Indication: DIARRHOEA
     Dosage: UNK
     Route: 065
     Dates: start: 20170118
  35. DARATUMUMAB [Suspect]
     Active Substance: DARATUMUMAB
     Dosage: AT CYCLE 2 DAY 22 (C2D22),1440 MG,1 IN 1 WK
     Route: 041
     Dates: start: 20160209, end: 20160209
  36. CHOLESTYRAMINE RESIN [Concomitant]
     Active Substance: CHOLESTYRAMINE
     Indication: COUGH
     Dosage: UNK
     Route: 065
  37. SODIUM PHOSPHATE, DIBASIC [Concomitant]
     Active Substance: SODIUM PHOSPHATE, DIBASIC
     Indication: DIARRHOEA
     Dosage: UNK
     Route: 048
     Dates: start: 20161215
  38. SODIUM PHOSPHATE, DIBASIC [Concomitant]
     Active Substance: SODIUM PHOSPHATE, DIBASIC
     Indication: BLOOD PHOSPHORUS
     Dosage: UNK
     Route: 048
     Dates: start: 20161117
  39. AMOXICILLIN TRIHYDRATE [Concomitant]
     Active Substance: AMOXICILLIN
     Dosage: UNKNOWN, 3 IN 1 D
     Route: 048
     Dates: start: 20160101
  40. DEXAMETHASONE. [Suspect]
     Active Substance: DEXAMETHASONE
     Indication: PLASMA CELL MYELOMA
     Dosage: 40 MG, CYCLE 1 DAY 1
     Route: 041
     Dates: start: 20151215, end: 20151215
  41. REVLIMID [Suspect]
     Active Substance: LENALIDOMIDE
     Indication: PLASMA CELL MYELOMA
     Dosage: AT CYCLE 1 PERIOD 1, 25 MG,21 IN 28 D
     Route: 048
     Dates: start: 20151215
  42. AMOXICILLIN TRIHYDRATE [Concomitant]
     Active Substance: AMOXICILLIN
     Indication: LOWER RESPIRATORY TRACT INFECTION
     Dosage: UNKNOWN, 3 IN 1 D
     Route: 048
     Dates: start: 20160104

REACTIONS (6)
  - Dizziness [Unknown]
  - Dyspnoea [Unknown]
  - Febrile neutropenia [Recovered/Resolved]
  - Abdominal pain [Recovered/Resolved]
  - Mood swings [Unknown]
  - Contusion [Unknown]

NARRATIVE: CASE EVENT DATE: 20151218
